FAERS Safety Report 18233208 (Version 2)
Quarter: 2022Q3

REPORT INFORMATION
  Report Type: Report from Study
  Country: DE (occurrence: DE)
  Receive Date: 20200904
  Receipt Date: 20220825
  Transmission Date: 20221027
  Serious: Yes (Hospitalization)
  Sender: FDA-Public Use
  Company Number: DE-MYLANLABS-2020M1076119

PATIENT
  Sex: Female

DRUGS (3)
  1. HULIO [Suspect]
     Active Substance: ADALIMUMAB-FKJP
     Indication: Axial spondyloarthritis
     Dosage: 40 MILLIGRAM
     Route: 065
     Dates: start: 20190724
  2. HULIO [Suspect]
     Active Substance: ADALIMUMAB-FKJP
     Dosage: 40 MILLIGRAM, Q2W (EVERY 2 WEEKS)
     Route: 065
     Dates: start: 20190924
  3. ETORICOXIB [Suspect]
     Active Substance: ETORICOXIB
     Indication: Axial spondyloarthritis
     Dosage: 60 MILLIGRAM, QW (ONCE A WEEK)
     Route: 065

REACTIONS (4)
  - Enthesopathy [Not Recovered/Not Resolved]
  - Pain [Not Recovered/Not Resolved]
  - Arthropod bite [Unknown]
  - SARS-CoV-2 test negative [Unknown]

NARRATIVE: CASE EVENT DATE: 20200601
